FAERS Safety Report 9969624 (Version 1)
Quarter: 2014Q1

REPORT INFORMATION
  Report Type: Spontaneous
  Country: US (occurrence: None)
  Receive Date: 20140304
  Receipt Date: 20140304
  Transmission Date: 20141002
  Serious: Yes (Hospitalization)
  Sender: FDA-Public Use
  Company Number: None

PATIENT
  Age: 34 Year
  Sex: Female
  Weight: 70.31 kg

DRUGS (1)
  1. TECFIDERA 240MG BIOGEN [Suspect]
     Indication: MULTIPLE SCLEROSIS
     Dosage: 1, BID, ORAL
     Route: 048
     Dates: start: 20131119, end: 20140224

REACTIONS (12)
  - Abdominal pain [None]
  - Diarrhoea [None]
  - Drug ineffective [None]
  - Asthma [None]
  - Lacrimation increased [None]
  - Nasal congestion [None]
  - Sneezing [None]
  - Eye swelling [None]
  - Swelling face [None]
  - Pruritus [None]
  - Erythema [None]
  - Urticaria [None]
